FAERS Safety Report 14985385 (Version 4)
Quarter: 2018Q4

REPORT INFORMATION
  Report Type: Spontaneous
  Country: US (occurrence: US)
  Receive Date: 20180607
  Receipt Date: 20181129
  Transmission Date: 20190204
  Serious: Yes (Other)
  Sender: FDA-Public Use
  Company Number: US-SA-2018SA148462

PATIENT
  Age: 54 Year
  Sex: Female

DRUGS (10)
  1. ARAVA [Suspect]
     Active Substance: LEFLUNOMIDE
     Indication: RHEUMATOID ARTHRITIS
  2. CODEINE SULFATE. [Concomitant]
     Active Substance: CODEINE SULFATE
  3. PLAQUENIL [Suspect]
     Active Substance: HYDROXYCHLOROQUINE SULFATE
     Indication: RHEUMATOID ARTHRITIS
  4. TRAMADOL. [Concomitant]
     Active Substance: TRAMADOL
  5. METHOTREXATE. [Suspect]
     Active Substance: METHOTREXATE
     Indication: RHEUMATOID ARTHRITIS
     Dosage: UNK
     Dates: start: 2013
  6. XELJANZ [Concomitant]
     Active Substance: TOFACITINIB CITRATE
     Dosage: 11 MG, QD
     Route: 048
  7. ORENCIA [Suspect]
     Active Substance: ABATACEPT
     Indication: RHEUMATOID ARTHRITIS
  8. MORPHINE [Concomitant]
     Active Substance: MORPHINE
  9. TETANUS TOXOID [Concomitant]
     Active Substance: TETANUS TOXOIDS
  10. DILANTIN D.A. [Concomitant]
     Active Substance: PHENYTOIN SODIUM

REACTIONS (4)
  - Pulmonary fibrosis [Unknown]
  - Interstitial lung disease [Unknown]
  - Lung infection [Unknown]
  - Lung disorder [Unknown]
